FAERS Safety Report 26077377 (Version 1)
Quarter: 2025Q4

REPORT INFORMATION
  Report Type: Spontaneous
  Country: US (occurrence: US)
  Receive Date: 20251121
  Receipt Date: 20251121
  Transmission Date: 20260118
  Serious: No
  Sender: NOVO NORDISK
  Company Number: US-NOVOPROD-1300575

PATIENT
  Age: 65 Year
  Sex: Female

DRUGS (1)
  1. TRESIBA [Suspect]
     Active Substance: INSULIN DEGLUDEC
     Indication: Type 1 diabetes mellitus
     Dosage: 8 UNITS ONCE DAILY
     Route: 058
     Dates: start: 202407

REACTIONS (4)
  - Nervousness [Recovered/Resolved]
  - Blood glucose increased [Recovered/Resolved]
  - Drug delivery system issue [Not Recovered/Not Resolved]
  - Device leakage [Unknown]

NARRATIVE: CASE EVENT DATE: 20241006
